FAERS Safety Report 18880555 (Version 1)
Quarter: 2021Q1

REPORT INFORMATION
  Report Type: Spontaneous
  Country: CN (occurrence: CN)
  Receive Date: 20210211
  Receipt Date: 20210211
  Transmission Date: 20210420
  Serious: Yes (Hospitalization, Other)
  Sender: FDA-Public Use
  Company Number: CN-GLAXOSMITHKLINE-CNCH2021GSK006291

PATIENT
  Age: 34 Year
  Sex: Male

DRUGS (2)
  1. COW BEZOAR [Suspect]
     Active Substance: BOS TAURUS GALLSTONE
     Indication: TOOTHACHE
     Dosage: UNK
     Route: 065
     Dates: start: 20201201, end: 20201203
  2. VOTALIN [Suspect]
     Active Substance: DICLOFENAC SODIUM
     Indication: ANALGESIC THERAPY
     Dosage: 25 MG, TID
     Route: 048
     Dates: start: 20201201, end: 20201203

REACTIONS (1)
  - Acute generalised exanthematous pustulosis [Recovered/Resolved]

NARRATIVE: CASE EVENT DATE: 20201203
